FAERS Safety Report 4284226-6 (Version None)
Quarter: 2004Q1

REPORT INFORMATION
  Report Type: 
  Country: None (occurrence: None)
  Receive Date: 20040203
  Receipt Date: 20021203
  Transmission Date: 20041129
  Serious: Yes (Hospitalization)
  Sender: FDA-Public Use
  Company Number: ES-ROCHE-327133

PATIENT
  Age: 51 Year
  Sex: Female
  Weight: 73 kg

DRUGS (9)
  1. DACLIZUMAB [Suspect]
     Route: 042
     Dates: start: 20020414, end: 20020414
  2. DACLIZUMAB [Suspect]
     Dosage: FOR FOUR DOSES.
     Route: 042
     Dates: start: 20020429, end: 20020610
  3. MYCOPHENOLATE MOFETIL [Suspect]
     Route: 048
     Dates: start: 20021115
  4. PREDNISONE [Concomitant]
     Dates: start: 20020926
  5. FUROSEMIDE [Concomitant]
     Dates: start: 20020913, end: 20021202
  6. DOXAZOSIN MESYLATE [Concomitant]
     Dates: start: 20021129, end: 20021129
  7. OMEPRAZOL [Concomitant]
     Dates: start: 20021010
  8. ALOPURINOL [Concomitant]
     Dates: start: 20021010, end: 20021212
  9. DOMPERIDONE [Concomitant]
     Dates: start: 20021010

REACTIONS (1)
  - CYTOMEGALOVIRUS INFECTION [None]
